FAERS Safety Report 8887235 (Version 2)
Quarter: 2012Q4

REPORT INFORMATION
  Report Type: 
  Country: JP (occurrence: JP)
  Receive Date: 20121105
  Receipt Date: 20121112
  Transmission Date: 20130627
  Serious: Yes (Life-Threatening)
  Sender: FDA-Public Use
  Company Number: JP-AMGEN-JPNSP2012070180

PATIENT
  Age: 81 Year
  Sex: Male

DRUGS (5)
  1. RANMARK [Suspect]
     Indication: PROSTATE CANCER
     Dosage: 120 mg, one time dose
     Route: 058
     Dates: start: 20120815, end: 20120815
  2. FENTANYL [Concomitant]
     Dosage: Unknown
     Route: 050
     Dates: start: 20120507
  3. BAYASPIRIN [Concomitant]
     Dosage: 100 mg, qd
     Route: 048
  4. AMLODIPINE [Concomitant]
     Dosage: 5 mg, qd
     Route: 048
  5. FLIVAS [Concomitant]
     Dosage: 50 mg, qd
     Route: 048

REACTIONS (1)
  - Hypocalcaemia [Not Recovered/Not Resolved]
